FAERS Safety Report 6559849-1 (Version None)
Quarter: 2010Q1

REPORT INFORMATION
  Report Type: 
  Country: None (occurrence: None)
  Receive Date: 20100129
  Receipt Date: 20090914
  Transmission Date: 20100710
  Serious: No
  Sender: FDA-Public Use
  Company Number: US-ABBOTT-09P-163-0597298-00

PATIENT
  Sex: Male
  Weight: 62.198 kg

DRUGS (14)
  1. HUMIRA [Suspect]
     Indication: CROHN'S DISEASE
     Route: 058
     Dates: start: 20090301
  2. APIDRA INSULIN [Concomitant]
     Indication: DRUG USE FOR UNKNOWN INDICATION
  3. NEXIUM [Concomitant]
     Indication: DRUG USE FOR UNKNOWN INDICATION
  4. LYRICA [Concomitant]
     Indication: DRUG USE FOR UNKNOWN INDICATION
  5. APAP W/ CODEINE [Concomitant]
     Indication: DRUG USE FOR UNKNOWN INDICATION
  6. LIQUID MULTI-VITAMINS [Concomitant]
     Indication: DRUG USE FOR UNKNOWN INDICATION
  7. METOPROLOL TARTRATE [Concomitant]
     Indication: DRUG USE FOR UNKNOWN INDICATION
     Dosage: 1/2 TAB
  8. PENTASA [Concomitant]
     Indication: DRUG USE FOR UNKNOWN INDICATION
  9. SLOW-NIACIN [Concomitant]
     Indication: DRUG USE FOR UNKNOWN INDICATION
  10. QUININE SULFATE [Concomitant]
     Indication: DRUG USE FOR UNKNOWN INDICATION
  11. VSL # 3 PRO-BIOTIC [Concomitant]
     Indication: DRUG USE FOR UNKNOWN INDICATION
     Dosage: 225 BILLION
  12. PROCRIT [Concomitant]
     Indication: DRUG USE FOR UNKNOWN INDICATION
  13. FLAXSEED OIL [Concomitant]
     Indication: DRUG USE FOR UNKNOWN INDICATION
  14. FISH OIL [Concomitant]
     Indication: DRUG USE FOR UNKNOWN INDICATION

REACTIONS (1)
  - DRUG DOSE OMISSION [None]
